FAERS Safety Report 9842623 (Version 1)
Quarter: 2014Q1

REPORT INFORMATION
  Report Type: Spontaneous
  Country: US (occurrence: US)
  Receive Date: 20140124
  Receipt Date: 20140124
  Transmission Date: 20141002
  Serious: Yes (Hospitalization)
  Sender: FDA-Public Use
  Company Number: US-BAYER-2014-012514

PATIENT
  Age: 25 Year
  Sex: Female
  Weight: 58.05 kg

DRUGS (6)
  1. YAZ [Suspect]
  2. YASMIN [Suspect]
  3. ALLEGRA [Concomitant]
     Dosage: UNK UNK, BID
  4. ECOTRIN [Concomitant]
  5. PREVACID [Concomitant]
  6. MAGNESIUM SULPHATE [MAGNESIUM SULFATE] [Concomitant]

REACTIONS (1)
  - Myocardial infarction [None]
